FAERS Safety Report 16863138 (Version 1)
Quarter: 2019Q3

REPORT INFORMATION
  Report Type: Spontaneous
  Country: US (occurrence: US)
  Receive Date: 20190927
  Receipt Date: 20190927
  Transmission Date: 20191005
  Serious: Yes (Death)
  Sender: FDA-Public Use
  Company Number: US-PFIZER INC-2019388935

PATIENT
  Age: 55 Year
  Sex: Female

DRUGS (1)
  1. FRAGMIN [Suspect]
     Active Substance: DALTEPARIN SODIUM
     Dosage: 1.8 ML (18,000 UNITS) SUBQ (SUBCUTANEOUS) DAILY
     Route: 058
     Dates: start: 20190903

REACTIONS (1)
  - Death [Fatal]
